FAERS Safety Report 5481636-6 (Version None)
Quarter: 2007Q4

REPORT INFORMATION
  Report Type: 
  Country: None (occurrence: None)
  Receive Date: 20071004
  Receipt Date: 20070927
  Transmission Date: 20080405
  Serious: Yes (Death)
  Sender: FDA-Public Use
  Company Number: 2007SP017638

PATIENT
  Age: 32 Year
  Sex: Male

DRUGS (9)
  1. PEG-INTRON [Suspect]
     Indication: HEPATITIS C
     Dosage: 150 MCG; QW; SC
     Route: 058
     Dates: start: 20070302
  2. REBETOL [Suspect]
     Indication: HEPATITIS C
     Dosage: 1200 MG; QD; PO
     Route: 048
     Dates: start: 20070302
  3. HEROIN [Suspect]
     Indication: DRUG USE FOR UNKNOWN INDICATION
  4. ZOLOFT [Concomitant]
  5. PAXIL [Concomitant]
  6. ASCORBIC ACID [Concomitant]
  7. FOLIC ACID [Concomitant]
  8. IRON [Concomitant]
  9. PAXIL [Concomitant]

REACTIONS (2)
  - NARCOTIC INTOXICATION [None]
  - OVERDOSE [None]
